FAERS Safety Report 6177052-4 (Version None)
Quarter: 2009Q2

REPORT INFORMATION
  Report Type: 
  Country: None (occurrence: None)
  Receive Date: 20090501
  Receipt Date: 20090202
  Transmission Date: 20091009
  Serious: Yes (Other)
  Sender: FDA-Public Use
  Company Number: DE-ROCHE-614750

PATIENT
  Sex: Female

DRUGS (4)
  1. SAQUINAVIR [Suspect]
     Route: 065
  2. RITONAVIR [Suspect]
     Route: 065
  3. ZIDOVUDINE [Suspect]
     Route: 065
  4. LAMIVUDINE [Suspect]
     Route: 065

REACTIONS (1)
  - ABORTION SPONTANEOUS [None]
